FAERS Safety Report 8115388-8 (Version None)
Quarter: 2012Q1

REPORT INFORMATION
  Report Type: 
  Country: None (occurrence: None)
  Receive Date: 20120206
  Receipt Date: 20120206
  Transmission Date: 20120608
  Serious: Yes (Other)
  Sender: FDA-Public Use
  Company Number: None

PATIENT
  Age: 53 Year
  Sex: Female

DRUGS (1)
  1. AMITRIPTYLINE HCL [Suspect]
     Dosage: 1 TAB
     Route: 048
     Dates: start: 20120111, end: 20120205

REACTIONS (2)
  - PARAESTHESIA [None]
  - HYPOAESTHESIA [None]
